FAERS Safety Report 6261547-9 (Version None)
Quarter: 2009Q3

REPORT INFORMATION
  Report Type: 
  Country: None (occurrence: None)
  Receive Date: 20090709
  Receipt Date: 20090702
  Transmission Date: 20100115
  Serious: Yes (Death, Hospitalization)
  Sender: FDA-Public Use
  Company Number: DE-CELGENEUS-062-20785-09070200

PATIENT
  Sex: Male

DRUGS (9)
  1. THALIDOMIDE [Suspect]
     Indication: MULTIPLE MYELOMA
     Route: 048
     Dates: start: 20090604, end: 20090621
  2. PREDNISONE [Concomitant]
     Indication: MULTIPLE MYELOMA
     Dosage: 30-50MG DAILY
     Route: 048
     Dates: start: 20090604, end: 20090621
  3. CYCLOPHOSPHAMIDE [Concomitant]
     Indication: MULTIPLE MYELOMA
     Route: 065
     Dates: start: 20090616, end: 20090621
  4. VORICONAZOLE [Concomitant]
     Indication: PROPHYLAXIS
     Route: 065
     Dates: start: 20090201, end: 20090621
  5. DEXAMETHASONE [Concomitant]
     Indication: MULTIPLE MYELOMA
     Route: 065
     Dates: start: 20090501, end: 20090604
  6. BENDAMUSTINE [Concomitant]
     Indication: MULTIPLE MYELOMA
     Route: 065
     Dates: start: 20090401
  7. ACYCLOVIR [Concomitant]
     Indication: PROPHYLAXIS
     Route: 065
     Dates: start: 20090201, end: 20090621
  8. COTRIM [Concomitant]
     Indication: PROPHYLAXIS
     Route: 065
     Dates: start: 20090201, end: 20090621
  9. PANTOZOL [Concomitant]
     Indication: PROPHYLAXIS
     Route: 065
     Dates: start: 20090201, end: 20090627

REACTIONS (3)
  - FUNGAL INFECTION [None]
  - MULTIPLE MYELOMA [None]
  - PULMONARY HAEMORRHAGE [None]
